FAERS Safety Report 23935254 (Version 3)
Quarter: 2024Q3

REPORT INFORMATION
  Report Type: Spontaneous
  Country: JP (occurrence: JP)
  Receive Date: 20240604
  Receipt Date: 20240801
  Transmission Date: 20241017
  Serious: Yes (Other)
  Sender: CELLTRION
  Company Number: JP-CELLTRION INC.-2024JP013096

PATIENT

DRUGS (11)
  1. INFLIXIMAB [Suspect]
     Active Substance: INFLIXIMAB
     Indication: Colitis ulcerative
     Dosage: UNK
     Route: 041
     Dates: start: 20240219, end: 20240219
  2. INFLIXIMAB [Suspect]
     Active Substance: INFLIXIMAB
     Dosage: UNK
     Route: 041
     Dates: start: 20240304, end: 20240304
  3. INFLIXIMAB [Suspect]
     Active Substance: INFLIXIMAB
     Dosage: UNK
     Route: 041
     Dates: start: 20240401, end: 20240401
  4. INFLIXIMAB [Suspect]
     Active Substance: INFLIXIMAB
     Dosage: UNK
     Route: 041
     Dates: start: 20240527, end: 20240527
  5. BEPOTASTINE BESYLATE [Concomitant]
     Active Substance: BEPOTASTINE BESYLATE
     Indication: Prophylaxis
     Dosage: 1 DOSAGE FORM/DAY
     Route: 048
     Dates: start: 20240219, end: 20240219
  6. BEPOTASTINE BESYLATE [Concomitant]
     Active Substance: BEPOTASTINE BESYLATE
     Dosage: 1 DOSAGE FORM/DAY
     Route: 048
     Dates: start: 20240304, end: 20240304
  7. BEPOTASTINE BESYLATE [Concomitant]
     Active Substance: BEPOTASTINE BESYLATE
     Dosage: 1 DOSAGE FORM/DAY
     Route: 048
     Dates: start: 20240527, end: 20240527
  8. PREDONINE [Concomitant]
     Active Substance: PREDNISOLONE
     Indication: Colitis ulcerative
     Dosage: 4 DOSAGE FORM/DAY
     Route: 048
     Dates: start: 20240219, end: 20240225
  9. PREDONINE [Concomitant]
     Active Substance: PREDNISOLONE
     Dosage: 3 DOSAGE FORM/DAY
     Route: 048
     Dates: start: 20240226, end: 20240303
  10. PREDONINE [Concomitant]
     Active Substance: PREDNISOLONE
     Dosage: 2 DOSAGE FORM/DAY
     Route: 048
     Dates: start: 20240304, end: 20240310
  11. PREDONINE [Concomitant]
     Active Substance: PREDNISOLONE
     Dosage: 1 DOSAGE FORM/DAY
     Route: 048
     Dates: start: 20240311, end: 20240317

REACTIONS (3)
  - Deafness [Recovered/Resolved]
  - Ear swelling [Unknown]
  - Arthralgia [Recovered/Resolved]

NARRATIVE: CASE EVENT DATE: 20240520
